FAERS Safety Report 20823694 (Version 5)
Quarter: 2022Q4

REPORT INFORMATION
  Report Type: Report from Study
  Country: DE (occurrence: None)
  Receive Date: 20220513
  Receipt Date: 20221212
  Transmission Date: 20230113
  Serious: Yes (Hospitalization)
  Sender: FDA-Public Use
  Company Number: DE-ROCHE-3091831

PATIENT
  Age: 79 Year
  Sex: Female
  Weight: 54.3 kg

DRUGS (19)
  1. ATEZOLIZUMAB [Suspect]
     Active Substance: ATEZOLIZUMAB
     Indication: Triple negative breast cancer
     Dosage: DATE OF LAST DOSE PRIOR TO SAE IS 31/MAR/2022?DATE OF LAST DOSE PRIOR TO SAE: 29/JUL/2022
     Route: 041
     Dates: start: 20220204
  2. PACLITAXEL [Suspect]
     Active Substance: PACLITAXEL
     Indication: Triple negative breast cancer
     Dosage: DATE OF LAST DOSE PRIOR TO SAE IS 31/MAR/2022?DATE OF LAST DOSE PRIOR TO SAE: 06/MAY/2022
     Route: 042
     Dates: start: 20220218
  3. CARBOPLATIN [Suspect]
     Active Substance: CARBOPLATIN
     Indication: Triple negative breast cancer
     Dosage: DATE OF LAST DOSE PRIOR TO SAE IS 31/MAR/2022?DATE OF LAST DOSE PRIOR TO SAE: 06/MAY/2022
     Route: 042
     Dates: start: 20220218
  4. CYCLOPHOSPHAMIDE [Suspect]
     Active Substance: CYCLOPHOSPHAMIDE
     Indication: Triple negative breast cancer
     Dosage: DATE OF LAST DOSE PRIOR TO SAE: 29/JUL/2022
     Route: 042
     Dates: start: 20220525
  5. EPIRUBICIN [Suspect]
     Active Substance: EPIRUBICIN
     Indication: Triple negative breast cancer
     Dosage: DATE OF LAST DOSE PRIOR TO SAE: 29/JUL/2022
     Route: 042
     Dates: start: 20220525
  6. ZOFRAN [Concomitant]
     Active Substance: ONDANSETRON HYDROCHLORIDE
     Dates: start: 20220204
  7. PREDNISOLONE [Concomitant]
     Active Substance: PREDNISOLONE
     Dates: start: 20150809, end: 20150818
  8. ASPIRIN [Concomitant]
     Active Substance: ASPIRIN
     Dates: start: 20150809, end: 20220121
  9. SIMVASTATIN [Concomitant]
     Active Substance: SIMVASTATIN
     Dates: start: 20150809
  10. DEXAMETHASONE [Concomitant]
     Active Substance: DEXAMETHASONE
     Dates: start: 20220218, end: 20220506
  11. CIMETIDIN [Concomitant]
     Dates: start: 20220218, end: 20220506
  12. CLEMASTINE [Concomitant]
     Active Substance: CLEMASTINE
     Dates: start: 20220218, end: 20220506
  13. ONDANSETRON [Concomitant]
     Active Substance: ONDANSETRON
     Dates: start: 20220218, end: 20220506
  14. FILGRASTIM [Concomitant]
     Active Substance: FILGRASTIM
     Dosage: 1 S.C. ONCE
     Dates: start: 20220303, end: 20220303
  15. ACETAMINOPHEN [Concomitant]
     Active Substance: ACETAMINOPHEN
     Dates: start: 20220516, end: 20220928
  16. ENOXAPARIN SODIUM [Concomitant]
     Active Substance: ENOXAPARIN SODIUM
     Dates: start: 20220513, end: 20220928
  17. PANTOPRAZOLE [Concomitant]
     Active Substance: PANTOPRAZOLE
     Dates: start: 20220428
  18. HUMAN RED BLOOD CELL [Concomitant]
     Active Substance: HUMAN RED BLOOD CELL
     Dates: start: 20220609
  19. CIPROFLOXACIN [Concomitant]
     Active Substance: CIPROFLOXACIN
     Dosage: 400 MG THREE TIMES DAILY
     Dates: start: 20220609, end: 20220612

REACTIONS (2)
  - General physical health deterioration [Recovered/Resolved]
  - General physical health deterioration [Recovered/Resolved with Sequelae]

NARRATIVE: CASE EVENT DATE: 20220405
